FAERS Safety Report 9024933 (Version 1)
Quarter: 2013Q1

REPORT INFORMATION
  Report Type: Report from Study
  Country: US (occurrence: US)
  Receive Date: 20130121
  Receipt Date: 20130121
  Transmission Date: 20140127
  Serious: Yes (Other)
  Sender: FDA-Public Use
  Company Number: US-JNJFOC-20130105023

PATIENT
  Age: 65 None
  Sex: Female
  Weight: 77.11 kg

DRUGS (16)
  1. REMICADE [Suspect]
     Indication: RHEUMATOID ARTHRITIS
     Dosage: 2ND DOSE
     Route: 042
     Dates: start: 2012
  2. REMICADE [Suspect]
     Indication: RHEUMATOID ARTHRITIS
     Dosage: 3RD DOSE
     Route: 042
     Dates: start: 201212
  3. REMICADE [Suspect]
     Indication: RHEUMATOID ARTHRITIS
     Route: 042
     Dates: start: 201210
  4. PREDNISONE [Suspect]
     Indication: PRODUCT USED FOR UNKNOWN INDICATION
     Route: 065
     Dates: start: 2012, end: 2012
  5. PREDNISONE [Suspect]
     Indication: PRODUCT USED FOR UNKNOWN INDICATION
     Route: 065
     Dates: start: 2012
  6. IBUPROFEN [Concomitant]
     Indication: PAIN
     Route: 048
  7. ZYRTEC [Concomitant]
     Indication: RASH ERYTHEMATOUS
     Route: 048
     Dates: start: 201205
  8. GABAPENTIN [Concomitant]
     Indication: FIBROMYALGIA
     Route: 048
  9. SUCRALFATE [Concomitant]
     Indication: GASTRIC DISORDER
     Route: 048
  10. LAMOTRIGIN [Concomitant]
     Indication: MENTAL IMPAIRMENT
     Route: 048
  11. NIFEDIPINE [Concomitant]
     Indication: BLOOD PRESSURE
     Route: 048
  12. NEXIUM [Concomitant]
     Route: 048
  13. FLUOXETINE [Concomitant]
     Indication: NEUROPATHY PERIPHERAL
     Route: 048
  14. BUPROPION [Concomitant]
     Indication: NEUROPATHY PERIPHERAL
     Route: 048
  15. FISH OIL [Concomitant]
     Route: 048
  16. PROPRANOLOL [Concomitant]
     Indication: CARDIAC DISORDER
     Route: 048

REACTIONS (7)
  - Bedridden [Unknown]
  - Psoriasis [Recovered/Resolved]
  - Folliculitis [Not Recovered/Not Resolved]
  - Onychoclasis [Not Recovered/Not Resolved]
  - Blood test abnormal [Unknown]
  - Rash erythematous [Not Recovered/Not Resolved]
  - Arthralgia [Recovered/Resolved]
